FAERS Safety Report 7919066-7 (Version None)
Quarter: 2011Q4

REPORT INFORMATION
  Report Type: 
  Country: None (occurrence: None)
  Receive Date: 20111116
  Receipt Date: 20111114
  Transmission Date: 20120403
  Serious: Yes (Death, Life-Threatening, Other)
  Sender: FDA-Public Use
  Company Number: DE-B.I. PHARMACEUTICALS,INC./RIDGEFIELD-2011-DE-06310DE

PATIENT
  Sex: Male
  Weight: 75 kg

DRUGS (4)
  1. INSPRA [Concomitant]
     Dosage: 25 MG
     Route: 048
  2. GABAPENTIN [Concomitant]
     Dosage: 1800 MG
     Route: 048
  3. PRADAXA [Suspect]
     Indication: ATRIAL FIBRILLATION
     Dosage: 2 ANZ
     Route: 048
     Dates: start: 20111008, end: 20111024
  4. TORSEMIDE [Concomitant]
     Dosage: 5 MG
     Route: 048

REACTIONS (7)
  - GASTROINTESTINAL HAEMORRHAGE [None]
  - AZOTAEMIA [None]
  - PNEUMONIA [None]
  - SKIN HAEMORRHAGE [None]
  - OVERDOSE [None]
  - DRUG LEVEL ABOVE THERAPEUTIC [None]
  - RENAL FAILURE ACUTE [None]
